FAERS Safety Report 26214554 (Version 1)
Quarter: 2025Q4

REPORT INFORMATION
  Report Type: Spontaneous
  Country: US (occurrence: US)
  Receive Date: 20251230
  Receipt Date: 20251230
  Transmission Date: 20260118
  Serious: Yes (Other)
  Sender: ELI LILLY AND COMPANY
  Company Number: US-ELI_LILLY_AND_COMPANY-US202512031803

PATIENT
  Age: 39 Year
  Sex: Male

DRUGS (8)
  1. ZEPBOUND [Suspect]
     Active Substance: TIRZEPATIDE
     Indication: Tractional retinal detachment
     Dosage: 15 MG, UNKNOWN
     Route: 065
     Dates: start: 20250401, end: 20251112
  2. ZEPBOUND [Suspect]
     Active Substance: TIRZEPATIDE
     Indication: Tractional retinal detachment
     Dosage: 15 MG, UNKNOWN
     Route: 065
     Dates: start: 20250401, end: 20251112
  3. ZEPBOUND [Suspect]
     Active Substance: TIRZEPATIDE
     Indication: Diabetic retinal oedema
  4. ZEPBOUND [Suspect]
     Active Substance: TIRZEPATIDE
     Indication: Diabetic retinal oedema
  5. HUMALOG [Suspect]
     Active Substance: INSULIN LISPRO
     Indication: Type 1 diabetes mellitus
     Dosage: UNK UNK, UNKNOWN
     Route: 065
  6. CRESTOR [Concomitant]
     Active Substance: ROSUVASTATIN CALCIUM
     Indication: Hyperlipidaemia
     Dosage: UNK
  7. LEVOTHYROXINE [Concomitant]
     Active Substance: LEVOTHYROXINE
     Indication: Hypothyroidism
     Dosage: UNK
  8. LISINOPRIL [Concomitant]
     Active Substance: LISINOPRIL
     Indication: Renal disorder
     Dosage: UNK

REACTIONS (4)
  - Tractional retinal detachment [Unknown]
  - Diabetic retinopathy [Unknown]
  - Vision blurred [Recovered/Resolved]
  - Off label use [Unknown]
